FAERS Safety Report 14952958 (Version 2)
Quarter: 2018Q2

REPORT INFORMATION
  Report Type: Spontaneous
  Country: US (occurrence: US)
  Receive Date: 20180530
  Receipt Date: 20180606
  Transmission Date: 20180711
  Serious: Yes (Hospitalization)
  Sender: FDA-Public Use
  Company Number: US-TEVA-2018-US-898461

PATIENT
  Age: 75 Year
  Sex: Female

DRUGS (1)
  1. MELPHALAN. [Suspect]
     Active Substance: MELPHALAN
     Indication: IMMUNOSUPPRESSANT DRUG THERAPY
     Dosage: 140 MG/M2
     Route: 065

REACTIONS (2)
  - Small intestinal obstruction [Unknown]
  - Strongyloidiasis [Recovered/Resolved]
